FAERS Safety Report 8829802 (Version 1)
Quarter: 2012Q4

REPORT INFORMATION
  Report Type: 
  Country: GR (occurrence: GR)
  Receive Date: 20121008
  Receipt Date: 20121008
  Transmission Date: 20130627
  Serious: Yes (Other)
  Sender: FDA-Public Use
  Company Number: GR-VERTEX PHARMACEUTICAL INC.-000000000000000970

PATIENT
  Sex: Male

DRUGS (4)
  1. INCIVO [Suspect]
     Indication: HEPATITIS C
     Dosage: Dosage Form: Tablet
     Route: 048
     Dates: start: 20120628
  2. FLECAINIDE [Interacting]
     Indication: ATRIAL FIBRILLATION
  3. PEG-INTERFERON [Concomitant]
     Indication: HEPATITIS C
     Dosage: interrupted for 2-3 weeks
  4. RIBAVIRIN [Concomitant]
     Indication: HEPATITIS C
     Dosage: interrupted for 2-3 weeks

REACTIONS (4)
  - Atrial fibrillation [Recovered/Resolved]
  - Drug interaction [Unknown]
  - Haematocrit decreased [Recovered/Resolved]
  - Rash [Recovered/Resolved]
